FAERS Safety Report 18729455 (Version 1)
Quarter: 2021Q1

REPORT INFORMATION
  Report Type: Spontaneous
  Country: US (occurrence: US)
  Receive Date: 20210111
  Receipt Date: 20210111
  Transmission Date: 20210419
  Serious: Yes (Disabling)
  Sender: FDA-Public Use
  Company Number: None

PATIENT
  Age: 59 Year
  Sex: Female
  Weight: 63 kg

DRUGS (11)
  1. LISINOPRIL. [Concomitant]
     Active Substance: LISINOPRIL
  2. VITAMIN B12 [Concomitant]
     Active Substance: CYANOCOBALAMIN
  3. VITAMIN E [Concomitant]
     Active Substance: .ALPHA.-TOCOPHEROL
  4. FOLATE [Concomitant]
     Active Substance: FOLATE SODIUM
  5. ATORVASTATIN [Concomitant]
     Active Substance: ATORVASTATIN
  6. ZYRTEC [Concomitant]
     Active Substance: CETIRIZINE HYDROCHLORIDE
  7. MELATONIN [Concomitant]
     Active Substance: MELATONIN
  8. CRANBERRY. [Concomitant]
     Active Substance: CRANBERRY
  9. VIT D [Concomitant]
     Active Substance: VITAMIN D NOS
  10. TAMOXIFEN [Suspect]
     Active Substance: TAMOXIFEN
     Indication: BIOPSY BREAST ABNORMAL
     Dosage: ?          QUANTITY:1 TABLET(S);?
     Route: 048
     Dates: start: 20130514, end: 20150326
  11. METFORMIN [Concomitant]
     Active Substance: METFORMIN HYDROCHLORIDE

REACTIONS (5)
  - Non-alcoholic steatohepatitis [None]
  - Glucose tolerance impaired [None]
  - Thrombocytopenia [None]
  - Hepatic cirrhosis [None]
  - Impaired work ability [None]

NARRATIVE: CASE EVENT DATE: 20130514
